FAERS Safety Report 10290104 (Version 1)
Quarter: 2014Q3

REPORT INFORMATION
  Report Type: Spontaneous
  Country: US (occurrence: None)
  Receive Date: 20140707
  Receipt Date: 20140707
  Transmission Date: 20150326
  Serious: Yes (Other)
  Sender: FDA-Public Use
  Company Number: None

PATIENT
  Age: 64 Year
  Sex: Female

DRUGS (1)
  1. LATUDA [Suspect]
     Active Substance: LURASIDONE HYDROCHLORIDE
     Indication: BIPOLAR I DISORDER
     Dosage: 2 PILLS ONCE DAILY
     Route: 048
     Dates: start: 20140617, end: 20140704

REACTIONS (6)
  - Fatigue [None]
  - Sinus headache [None]
  - Neck pain [None]
  - Bruxism [None]
  - Diarrhoea [None]
  - Movement disorder [None]

NARRATIVE: CASE EVENT DATE: 20140619
